FAERS Safety Report 16395822 (Version 1)
Quarter: 2019Q2

REPORT INFORMATION
  Report Type: Spontaneous
  Country: DE (occurrence: DE)
  Receive Date: 20190605
  Receipt Date: 20190605
  Transmission Date: 20190711
  Serious: Yes (Other)
  Sender: FDA-Public Use
  Company Number: DE-MYLANLABS-2019M1052412

PATIENT
  Age: 61 Year
  Sex: Female

DRUGS (1)
  1. LEPONEX [Suspect]
     Active Substance: CLOZAPINE
     Indication: SCHIZOPHRENIA
     Dosage: UP TO 100MG/DAY
     Route: 048
     Dates: start: 20030902, end: 20031002

REACTIONS (11)
  - Pleurisy [Recovered/Resolved]
  - Pyrexia [Recovered/Resolved]
  - Neutrophil count increased [Recovered/Resolved]
  - Urinary tract infection [Recovered/Resolved]
  - Lymphocyte count decreased [Recovered/Resolved]
  - Platelet count increased [Recovered/Resolved]
  - White blood cell count increased [Recovered/Resolved]
  - Coagulopathy [Recovered/Resolved]
  - Lymphocyte morphology abnormal [Not Recovered/Not Resolved]
  - White blood cells urine positive [Recovered/Resolved]
  - C-reactive protein increased [Recovered/Resolved]

NARRATIVE: CASE EVENT DATE: 200309
